FAERS Safety Report 15967913 (Version 11)
Quarter: 2022Q1

REPORT INFORMATION
  Report Type: Report from Study
  Country: CA (occurrence: CA)
  Receive Date: 20190215
  Receipt Date: 20220224
  Transmission Date: 20220423
  Serious: Yes (Hospitalization, Disabling, Other)
  Sender: FDA-Public Use
  Company Number: PHHY2019CA025339

PATIENT
  Age: 45 Year
  Sex: Male

DRUGS (67)
  1. XOLAIR [Suspect]
     Active Substance: OMALIZUMAB
     Indication: Asthma
     Dosage: 300 MG, BIW
     Route: 058
     Dates: start: 20190116
  2. XOLAIR [Suspect]
     Active Substance: OMALIZUMAB
     Dosage: 300 MG, BIW
     Route: 058
     Dates: start: 20190130
  3. XOLAIR [Suspect]
     Active Substance: OMALIZUMAB
     Dosage: 300 MG, BIW
     Route: 058
     Dates: start: 20190227
  4. XOLAIR [Suspect]
     Active Substance: OMALIZUMAB
     Dosage: 300 MG, BIW
     Route: 058
     Dates: start: 201903
  5. XOLAIR [Suspect]
     Active Substance: OMALIZUMAB
     Dosage: 300 MG, BIW
     Route: 058
     Dates: start: 20190313
  6. XOLAIR [Suspect]
     Active Substance: OMALIZUMAB
     Dosage: UNK
     Route: 058
     Dates: start: 20190325
  7. XOLAIR [Suspect]
     Active Substance: OMALIZUMAB
     Dosage: 300 MG, BIW
     Route: 058
     Dates: start: 20190703
  8. XOLAIR [Suspect]
     Active Substance: OMALIZUMAB
     Dosage: 300 MG, BIW
     Route: 058
     Dates: start: 20190717
  9. XOLAIR [Suspect]
     Active Substance: OMALIZUMAB
     Dosage: 300 MG, BIW
     Route: 058
     Dates: start: 20190814
  10. XOLAIR [Suspect]
     Active Substance: OMALIZUMAB
     Dosage: 300 MG, BIW
     Route: 058
     Dates: start: 20190828
  11. XOLAIR [Suspect]
     Active Substance: OMALIZUMAB
     Dosage: 300 MG, BIW
     Route: 058
     Dates: start: 20191106
  12. XOLAIR [Suspect]
     Active Substance: OMALIZUMAB
     Dosage: 300 MG, BIW
     Route: 058
  13. XOLAIR [Suspect]
     Active Substance: OMALIZUMAB
     Dosage: 300 MG, BIW
     Route: 058
  14. XOLAIR [Suspect]
     Active Substance: OMALIZUMAB
     Dosage: 300 MG, BIW
     Route: 058
  15. XOLAIR [Suspect]
     Active Substance: OMALIZUMAB
     Dosage: UNK
     Route: 058
     Dates: start: 20210324
  16. XOLAIR [Suspect]
     Active Substance: OMALIZUMAB
     Dosage: UNK
     Route: 058
     Dates: start: 20210407
  17. XOLAIR [Suspect]
     Active Substance: OMALIZUMAB
     Dosage: UNK
     Route: 065
     Dates: start: 20210616
  18. XOLAIR [Suspect]
     Active Substance: OMALIZUMAB
     Dosage: UNK
     Route: 058
     Dates: start: 20210630
  19. XOLAIR [Suspect]
     Active Substance: OMALIZUMAB
     Dosage: UNK
     Route: 065
     Dates: start: 20210714
  20. XOLAIR [Suspect]
     Active Substance: OMALIZUMAB
     Dosage: 300 MG
     Route: 058
  21. XOLAIR [Suspect]
     Active Substance: OMALIZUMAB
     Dosage: 300 MG, BIW
     Route: 058
     Dates: start: 20210908
  22. XOLAIR [Suspect]
     Active Substance: OMALIZUMAB
     Dosage: 300 MG, BIW
     Route: 058
  23. XOLAIR [Suspect]
     Active Substance: OMALIZUMAB
     Dosage: 300 MG, BIW
     Route: 058
  24. XOLAIR [Suspect]
     Active Substance: OMALIZUMAB
     Dosage: 300 MG, BIW
     Route: 058
  25. XOLAIR [Suspect]
     Active Substance: OMALIZUMAB
     Dosage: 300 MG, BIW
     Route: 058
  26. XOLAIR [Suspect]
     Active Substance: OMALIZUMAB
     Dosage: 3000 MG, BIW
     Route: 058
     Dates: start: 20211026
  27. XOLAIR [Suspect]
     Active Substance: OMALIZUMAB
     Dosage: 300 MG, BIW
     Route: 058
     Dates: start: 20211215
  28. METOPROLOL [Suspect]
     Active Substance: METOPROLOL
     Indication: Product used for unknown indication
     Dosage: UNK
     Route: 065
  29. MEROPENEM [Suspect]
     Active Substance: MEROPENEM
     Indication: Product used for unknown indication
     Dosage: 1 DOSAGE FORM, Q8H, (1 G (100 ML), (VIA INTERNAL IN 30 MINUTES 3X/DAY EVERY 8 HOURS))
     Route: 042
  30. ATORVASTATIN [Concomitant]
     Active Substance: ATORVASTATIN
     Indication: Cardiac disorder
     Dosage: 1 DOSAGE FORM, QD
     Route: 048
  31. PLAVIX [Concomitant]
     Active Substance: CLOPIDOGREL BISULFATE
     Indication: Cardiac disorder
     Dosage: 1 DOSAGE FORM, QD
     Route: 048
  32. DILTIAZEM [Concomitant]
     Active Substance: DILTIAZEM
     Indication: Cardiac disorder
     Dosage: 1 DOSAGE FORM, QD
     Route: 048
  33. PANTOPRAZOLE SODIUM [Concomitant]
     Active Substance: PANTOPRAZOLE SODIUM
     Indication: Gastrooesophageal reflux disease
     Dosage: 1 DOSAGE FORM, QD
     Route: 048
  34. RIVA EZETIMIBE [Concomitant]
     Indication: Cardiac disorder
     Dosage: 1 DOSAGE FORM, QD
     Route: 048
  35. LASIX [Concomitant]
     Active Substance: FUROSEMIDE
     Indication: Cardiac disorder
     Dosage: 40 MG, QD
     Route: 048
  36. LASIX [Concomitant]
     Active Substance: FUROSEMIDE
     Indication: Swelling
     Dosage: 20 MG, WITH DINNER
     Route: 065
  37. LASIX [Concomitant]
     Active Substance: FUROSEMIDE
     Dosage: 40 MG, BID
     Route: 048
     Dates: start: 202201
  38. LASIX [Concomitant]
     Active Substance: FUROSEMIDE
     Dosage: 20 MG, QD
     Route: 065
     Dates: start: 202201
  39. BREO ELLIPTA [Concomitant]
     Active Substance: FLUTICASONE FUROATE\VILANTEROL TRIFENATATE
     Indication: Product used for unknown indication
     Dosage: UNK (200/25 MCG), QD
     Route: 065
  40. SPIRIVA [Concomitant]
     Active Substance: TIOTROPIUM BROMIDE MONOHYDRATE
     Indication: Product used for unknown indication
     Dosage: 2 DOSAGE FORM
     Route: 055
  41. CORTISONE [Concomitant]
     Active Substance: CORTISONE
     Indication: Product used for unknown indication
     Dosage: 1 DOSAGE FORM, QD
  42. POTASSIUM [Concomitant]
     Active Substance: POTASSIUM
     Indication: Product used for unknown indication
     Dosage: 1 DOSAGE FORM, QD
     Route: 065
     Dates: start: 202201
  43. AURO CEPHALEXIN [Concomitant]
     Indication: Infection
     Dosage: 500 MG, QID
     Route: 065
     Dates: start: 20220210
  44. NAPROXEN [Concomitant]
     Active Substance: NAPROXEN
     Indication: Pain
     Dosage: 500 MG, BID, (TAKE 1 TABLET 2X/DAY AT LUNCH AND DINNER FOR 14 DAYS)
     Route: 065
     Dates: start: 20220209
  45. NAPROXEN [Concomitant]
     Active Substance: NAPROXEN
     Indication: Inflammation
  46. METOPROLOL TARTRATE [Concomitant]
     Active Substance: METOPROLOL TARTRATE
     Indication: Blood pressure abnormal
     Dosage: 100 MG, BID, (AT LUNCH AND DINNER REGULARLY)
     Route: 065
     Dates: start: 20220209
  47. METOPROLOL TARTRATE [Concomitant]
     Active Substance: METOPROLOL TARTRATE
     Indication: Cardiac disorder
  48. ELIQUIS [Concomitant]
     Active Substance: APIXABAN
     Indication: Coagulopathy
     Dosage: 5 MG, BID, (2X/DAY AT LUNCH AND DINNER)
     Route: 065
     Dates: start: 20220209
  49. FUROSEMIDE [Concomitant]
     Active Substance: FUROSEMIDE
     Indication: Product used for unknown indication
     Dosage: 40 MG, (TAKE 1 TABLET WITH LUNCH AND 0.5 TABLET AT NOON (EQUIVALENT TO LASIX))
     Route: 065
     Dates: start: 20210902
  50. FUROSEMIDE [Concomitant]
     Active Substance: FUROSEMIDE
     Dosage: 40 MG, BID, (2X/DAY AT LUNCH AND MIDDAY)
     Route: 065
     Dates: start: 20220209
  51. FUROSEMIDE [Concomitant]
     Active Substance: FUROSEMIDE
     Dosage: 40 MG, BID, (2X/DAY AT LUNCH AND MIDDAY)
     Route: 065
     Dates: start: 20220209
  52. SODIUM CHLORIDE [Concomitant]
     Active Substance: SODIUM CHLORIDE
     Indication: Product used for unknown indication
     Dosage: 1 DOSAGE FORM, (RINSE WITH 10ML OF NACLAVANT AND AFTER THE ANTIBIOTIC)
     Route: 065
     Dates: start: 20220111
  53. SODIUM CHLORIDE [Concomitant]
     Active Substance: SODIUM CHLORIDE
     Dosage: 1 DOSAGE FORM, (RINSE WITH 10ML OF NACLAVANT AND AFTER THE ANTIBIOTIC)
     Route: 065
     Dates: start: 20220106
  54. CORTEF [Concomitant]
     Active Substance: HYDROCORTISONE
     Indication: Product used for unknown indication
     Dosage: 10 MG, (DISPENSE: TAKE 1.5 TABLET IN THE MORNING AT 8:00, 1 TABLET AT NOON. IN CASE OF ACUTE DISEASE
     Route: 065
     Dates: start: 20220111
  55. PREDNISONE [Concomitant]
     Active Substance: PREDNISONE
     Indication: Product used for unknown indication
     Dosage: 5 MG, (STEP 1: TAKE 5 TABLETS 1X/DAY WITH LUNCH FOR 4 DAYS; STEP 2: TAKE 3 TABLETS 1X/DAY WITH LUNCH
     Route: 065
     Dates: start: 20220106
  56. PMS-NYSTATIN [Concomitant]
     Indication: Product used for unknown indication
     Dosage: 1 DOSAGE FORM, (100 U/ML), QID, TAKE 5 ML IN MOUTHWASH 4X/DAY, THEN SWALLOW. TAKE FOR 7 DAYS
     Route: 065
     Dates: start: 20220106
  57. LUMIGAN [Concomitant]
     Active Substance: BIMATOPROST
     Indication: Glaucoma
     Dosage: 1 DOSAGE FORM, QD (PUT 1 DROP IN THE 2 EYES 1X/DAY IN THE EVENING REGULARLY)
     Route: 065
     Dates: start: 20211116
  58. DILTIAZEM HYDROCHLORIDE [Concomitant]
     Active Substance: DILTIAZEM HYDROCHLORIDE
     Indication: Blood pressure abnormal
     Dosage: 180 MG, BID, (TAKE 2 CAPSULES/DAY AT BEDTIME-REGULARLY (EQUIVALENT TO CARDIZEM))
     Route: 065
     Dates: start: 20211114
  59. EPIPEN [Concomitant]
     Active Substance: EPINEPHRINE
     Indication: Product used for unknown indication
     Dosage: 0.3 MG, (IN THE SIDE OF THE THIGH IF NEEDED IN CASE OF SEVER ALLERGY THEN GO TO THE EMERGENCY DEPART
     Route: 030
     Dates: start: 20211110
  60. MOMETASONE FUROATE [Concomitant]
     Active Substance: MOMETASONE FUROATE
     Indication: Eczema
     Dosage: 1 DOSAGE FORM, QD, (APPLY A THIN LAYER 1X/DAY ON ECZEMA LESIONS 1X/DAY)
     Route: 065
     Dates: start: 20210928
  61. ZENHALE [Concomitant]
     Active Substance: FORMOTEROL FUMARATE\MOMETASONE FUROATE
     Indication: Product used for unknown indication
     Dosage: 1 DOSAGE FORM (5+200 MCG), BID, (TAKE 2 INHALATIONS 2X/DAY REGULARLY AND INCREASE TO 2 INHALATIONS 4
     Route: 065
     Dates: start: 20210715
  62. ALVESCO [Concomitant]
     Active Substance: CICLESONIDE
     Indication: Product used for unknown indication
     Dosage: 1 DOSAGE FORM, (200 MCG), BID, (TAKE 1 INHALATION BY MOUTH 2X/DAY IN THE MORNING AND EVENING. RINSE
     Route: 065
     Dates: start: 20210615
  63. PMS MONTELUKAST [Concomitant]
     Indication: Product used for unknown indication
     Dosage: 10 MG, QD, (DISPENSE 1 TABLET 1X/DAY AT BEDTIME-REGULARLY (EQUIVALENT TO SINGULAIR))
     Route: 065
     Dates: start: 20210615
  64. JAMP CLOPIDOGREL [Concomitant]
     Indication: Blood disorder
     Dosage: 75 MG, QD, (DISPENSE 1 TABLET/DAY WITH LUNCH-REGULARLY (EQUIVALENT TO PLAVIX))
     Route: 065
     Dates: start: 20210524
  65. CYANOCOBALAMIN [Concomitant]
     Active Substance: CYANOCOBALAMIN
     Indication: Product used for unknown indication
     Dosage: 1 DOSAGE FORM, QD, (DISPENSE 1 TABLET 1X/DAY IN THE MORNING AT BREAKFAST REGULARLY)
     Route: 065
     Dates: start: 20210524
  66. METOPROLOL [Concomitant]
     Active Substance: METOPROLOL
     Indication: Atrial fibrillation
     Dosage: 100 MG, BID
     Route: 065
     Dates: start: 20220209
  67. ELIQUIS [Concomitant]
     Active Substance: APIXABAN
     Indication: Atrial fibrillation
     Dosage: 5 MG, BID
     Route: 065
     Dates: start: 20220209

REACTIONS (24)
  - Pneumonia [Not Recovered/Not Resolved]
  - Blood pressure systolic increased [Not Recovered/Not Resolved]
  - Bronchiolitis [Unknown]
  - Respiratory tract infection [Unknown]
  - Renal impairment [Unknown]
  - Cellulitis [Unknown]
  - Cough [Not Recovered/Not Resolved]
  - Dyspnoea [Not Recovered/Not Resolved]
  - Bronchitis [Recovered/Resolved]
  - Decreased appetite [Not Recovered/Not Resolved]
  - Asthenia [Unknown]
  - Drug hypersensitivity [Unknown]
  - Catheter site bruise [Unknown]
  - Weight decreased [Unknown]
  - Respiratory rate increased [Unknown]
  - Gait disturbance [Unknown]
  - Bronchial disorder [Unknown]
  - Herpes zoster [Unknown]
  - Respiratory disorder [Unknown]
  - Asthma [Unknown]
  - Secretion discharge [Unknown]
  - Fatigue [Unknown]
  - Therapeutic response decreased [Unknown]
  - Drug ineffective [Unknown]

NARRATIVE: CASE EVENT DATE: 20190130
